FAERS Safety Report 7385362-8 (Version None)
Quarter: 2011Q1

REPORT INFORMATION
  Report Type: 
  Country: None (occurrence: None)
  Receive Date: 20110330
  Receipt Date: 20101202
  Transmission Date: 20110831
  Serious: No
  Sender: FDA-Public Use
  Company Number: US-MYLANLABS-2010S1020121

PATIENT
  Age: 59 Year
  Sex: Female

DRUGS (10)
  1. CALCIUM [Concomitant]
  2. MULTIVITAMIN [Concomitant]
  3. CLONAZEPAM [Concomitant]
     Indication: ANXIETY
  4. IRON [Concomitant]
  5. ASPIRIN [Concomitant]
  6. EMSAM [Suspect]
     Route: 062
  7. HORMONE THERAPY [Concomitant]
     Dosage: COMPOUNDED
  8. PROBIOTICA [Concomitant]
  9. EMSAM [Suspect]
     Indication: DEPRESSION
     Dosage: CHANGED Q24H
     Route: 062
     Dates: start: 20101001
  10. TRAZODONE HCL [Concomitant]
     Indication: INSOMNIA

REACTIONS (5)
  - HYPERHIDROSIS [None]
  - FEELING JITTERY [None]
  - DYSPNOEA [None]
  - DIZZINESS POSTURAL [None]
  - DIZZINESS [None]
